FAERS Safety Report 9693812 (Version 2)
Quarter: 2014Q1

REPORT INFORMATION
  Report Type: Spontaneous
  Country: TR (occurrence: TR)
  Receive Date: 20131118
  Receipt Date: 20140107
  Transmission Date: 20141002
  Serious: Yes (Death, Hospitalization, Other)
  Sender: FDA-Public Use
  Company Number: TR-ALEXION PHARMACEUTICALS INC.-A201303104

PATIENT
  Age: 37 Year
  Sex: Female

DRUGS (3)
  1. SOLIRIS 300MG [Suspect]
     Indication: HAEMOLYTIC URAEMIC SYNDROME
     Dosage: 900 MG, QW
     Route: 042
     Dates: start: 20130705, end: 20130726
  2. SOLIRIS 300MG [Suspect]
     Dosage: 1200 MG, Q2W
     Route: 042
     Dates: start: 20130802
  3. INTERFERON [Concomitant]
     Indication: MULTIPLE SCLEROSIS

REACTIONS (3)
  - Cardiac failure [Fatal]
  - Loss of consciousness [Unknown]
  - Myocardial infarction [Unknown]
